FAERS Safety Report 19433086 (Version 1)
Quarter: 2021Q2

REPORT INFORMATION
  Report Type: Spontaneous
  Country: FR (occurrence: FR)
  Receive Date: 20210618
  Receipt Date: 20210618
  Transmission Date: 20210717
  Serious: Yes (Other)
  Sender: FDA-Public Use
  Company Number: FR-ABBVIE-21K-056-3951437-00

PATIENT
  Age: 43 Year
  Sex: Male

DRUGS (3)
  1. CANNABIS [Suspect]
     Active Substance: CANNABIS SATIVA SUBSP. INDICA TOP
     Indication: PRODUCT USED FOR UNKNOWN INDICATION
     Route: 055
     Dates: start: 2021
  2. COCAINE [Suspect]
     Active Substance: COCAINE
     Indication: PRODUCT USED FOR UNKNOWN INDICATION
     Dosage: UP TO 2G / D (1 D)
     Route: 055
     Dates: start: 2021, end: 20210210
  3. TESTOSTERONE. [Suspect]
     Active Substance: TESTOSTERONE
     Indication: PRODUCT USED FOR UNKNOWN INDICATION
     Route: 065
     Dates: start: 2021

REACTIONS (4)
  - Substance use [Unknown]
  - Affective disorder [Unknown]
  - Suicidal ideation [Recovered/Resolved]
  - Impulsive behaviour [Unknown]

NARRATIVE: CASE EVENT DATE: 2021
